FAERS Safety Report 4432708-6 (Version None)
Quarter: 2004Q3

REPORT INFORMATION
  Report Type: 
  Country: None (occurrence: None)
  Receive Date: 20040820
  Receipt Date: 20040817
  Transmission Date: 20050211
  Serious: Yes (Hospitalization, Other)
  Sender: FDA-Public Use
  Company Number: DEWYE953206AUG04

PATIENT
  Age: 42 Year
  Sex: Male

DRUGS (2)
  1. TREVILOR RETARD (VENLAFFAXINE EXTENDED RELEASE) [Suspect]
     Dosage: 10 CAPSULES (OVERDOSE AMOUNT 750MG)
     Route: 048
     Dates: start: 20040805, end: 20040805
  2. DOXEPIN           (DOXEPIN) [Suspect]
     Dosage: 40 TABLETS (OVERDOSE AMOUNT 2000MG)
     Route: 048
     Dates: start: 20040805, end: 20040805

REACTIONS (5)
  - COMA [None]
  - ELECTROCARDIOGRAM QT PROLONGED [None]
  - MULTIPLE DRUG OVERDOSE INTENTIONAL [None]
  - MYDRIASIS [None]
  - TACHYCARDIA [None]
